FAERS Safety Report 11432766 (Version 1)
Quarter: 2015Q3

REPORT INFORMATION
  Report Type: Report from Study
  Country: CO (occurrence: CO)
  Receive Date: 20150828
  Receipt Date: 20150828
  Transmission Date: 20151125
  Serious: Yes (Death, Hospitalization)
  Sender: FDA-Public Use
  Company Number: CO-ABBVIE-15P-036-1452785-00

PATIENT
  Age: 53 Year
  Sex: Male
  Weight: 70 kg

DRUGS (1)
  1. ZEMPLAR [Suspect]
     Active Substance: PARICALCITOL
     Indication: HYPERPARATHYROIDISM SECONDARY
     Route: 048
     Dates: start: 20130409, end: 20150726

REACTIONS (6)
  - Cardio-respiratory arrest [Fatal]
  - Condition aggravated [Fatal]
  - Respiratory arrest [Fatal]
  - Pneumonia [Fatal]
  - Cardio-respiratory arrest [Fatal]
  - Haemoptysis [Fatal]

NARRATIVE: CASE EVENT DATE: 20150803
